FAERS Safety Report 14788083 (Version 2)
Quarter: 2018Q2

REPORT INFORMATION
  Report Type: Spontaneous
  Country: US (occurrence: US)
  Receive Date: 20180422
  Receipt Date: 20180423
  Transmission Date: 20180711
  Serious: Yes (Hospitalization, Other)
  Sender: FDA-Public Use
  Company Number: PHEH2018US015005

PATIENT
  Sex: Male

DRUGS (22)
  1. ILARIS [Suspect]
     Active Substance: CANAKINUMAB
     Dosage: 180 MG, Q4W (AT DOL 1149)
     Route: 065
  2. ILARIS [Suspect]
     Active Substance: CANAKINUMAB
     Dosage: 150 MG, Q4W (AT DOL 1219)
     Route: 065
  3. PREDNISOLONE. [Suspect]
     Active Substance: PREDNISOLONE
     Indication: PRODUCT USED FOR UNKNOWN INDICATION
     Dosage: 20 MG, QD  (AT DOL 801)
     Route: 048
  4. PREDNISOLONE. [Suspect]
     Active Substance: PREDNISOLONE
     Dosage: 22 MG, QD (AT DOL 904)
     Route: 048
  5. PREDNISOLONE. [Suspect]
     Active Substance: PREDNISOLONE
     Dosage: 12 UNK, UNK (AT DOL 1618)
     Route: 048
  6. PREDNISONE. [Concomitant]
     Active Substance: PREDNISONE
     Indication: PRODUCT USED FOR UNKNOWN INDICATION
     Dosage: 16.25 MG, QD (AT DOL 2086)
     Route: 048
  7. VENOFER [Concomitant]
     Active Substance: IRON SUCROSE
     Indication: PRODUCT USED FOR UNKNOWN INDICATION
     Dosage: UNK (ON DOL 2086)
     Route: 041
  8. ILARIS [Suspect]
     Active Substance: CANAKINUMAB
     Dosage: 180 MG, Q2W (AT DOL 1681)
     Route: 065
  9. ILARIS [Suspect]
     Active Substance: CANAKINUMAB
     Dosage: 180 MG, Q4W (AT DOL 904)
     Route: 065
  10. ILARIS [Suspect]
     Active Substance: CANAKINUMAB
     Dosage: 180 MG, QD (AT DOL 1085)
     Route: 065
  11. PREDNISOLONE. [Suspect]
     Active Substance: PREDNISOLONE
     Dosage: 12 MG, QD (AT DOL 1085)
     Route: 048
  12. ILARIS [Suspect]
     Active Substance: CANAKINUMAB
     Dosage: 150 MG, QD (AT DOL 1254)
     Route: 065
  13. PREDNISOLONE. [Suspect]
     Active Substance: PREDNISOLONE
     Dosage: 12 MG, QD (AT DOL 1149)
     Route: 048
  14. TOCILIZUMAB. [Suspect]
     Active Substance: TOCILIZUMAB
     Dosage: 150 MG, Q2W (AT DOL 2086)
     Route: 065
  15. PREDNISOLONE. [Suspect]
     Active Substance: PREDNISOLONE
     Dosage: 12 MG, QD (AT DOL 1254)
     Route: 048
  16. TOCILIZUMAB. [Suspect]
     Active Substance: TOCILIZUMAB
     Indication: PRODUCT USED FOR UNKNOWN INDICATION
     Dosage: 150 MG, Q2W (AT DOL 1940)
     Route: 065
  17. ILARIS [Suspect]
     Active Substance: CANAKINUMAB
     Indication: STILL^S DISEASE
     Dosage: 180 MG, Q4W (AT DOL 801)
     Route: 065
  18. ILARIS [Suspect]
     Active Substance: CANAKINUMAB
     Dosage: 180 MG, Q4W (AT DOL 1401)
     Route: 065
  19. PREDNISOLONE. [Suspect]
     Active Substance: PREDNISOLONE
     Dosage: 24 MG, BID (AT DOL 1219)
     Route: 048
  20. PREDNISOLONE. [Suspect]
     Active Substance: PREDNISOLONE
     Dosage: 12 MG, QD (AT DOL 1940)
     Route: 048
  21. TRIMETHOPRIM SULFAMETHOXAZOLE [Concomitant]
     Active Substance: SULFAMETHOXAZOLE\TRIMETHOPRIM
     Indication: ANTIFUNGAL PROPHYLAXIS
     Dosage: UNK
     Route: 065
  22. PREDNISOLONE. [Suspect]
     Active Substance: PREDNISOLONE
     Dosage: 18 MG, QD (AT DOL 1401)
     Route: 048

REACTIONS (10)
  - Influenza like illness [Unknown]
  - Pleural adhesion [Unknown]
  - Pneumonia lipoid [Unknown]
  - Alveolar proteinosis [Unknown]
  - Histiocytosis haematophagic [Unknown]
  - Cough [Unknown]
  - Diarrhoea [Unknown]
  - Weight decreased [Unknown]
  - Pneumonia [Unknown]
  - Clubbing [Unknown]
